FAERS Safety Report 25239743 (Version 1)
Quarter: 2025Q2

REPORT INFORMATION
  Report Type: Spontaneous
  Country: US (occurrence: US)
  Receive Date: 20250425
  Receipt Date: 20250425
  Transmission Date: 20250717
  Serious: No
  Sender: GLAND PHARMA LTD
  Company Number: US-GLANDPHARMA-US-2025GLNSPO01067

PATIENT

DRUGS (5)
  1. DIPHENHYDRAMINE HYDROCHLORIDE [Suspect]
     Active Substance: DIPHENHYDRAMINE HYDROCHLORIDE
     Indication: Antiallergic therapy
     Route: 065
  2. IVABRADINE [Concomitant]
     Active Substance: IVABRADINE
     Indication: Chronic fatigue syndrome
     Route: 065
  3. IVABRADINE [Concomitant]
     Active Substance: IVABRADINE
  4. IVABRADINE [Concomitant]
     Active Substance: IVABRADINE
     Indication: Chronic fatigue syndrome
  5. IVABRADINE [Concomitant]
     Active Substance: IVABRADINE
     Indication: Postural orthostatic tachycardia syndrome

REACTIONS (1)
  - Insomnia [Unknown]
